FAERS Safety Report 11422244 (Version 1)
Quarter: 2015Q3

REPORT INFORMATION
  Report Type: Spontaneous
  Country: US (occurrence: None)
  Receive Date: 20150826
  Receipt Date: 20150826
  Transmission Date: 20151125
  Serious: No
  Sender: FDA-Public Use
  Company Number: None

PATIENT
  Age: 59 Year
  Sex: Male

DRUGS (16)
  1. LEVOTHYROXIN [Concomitant]
     Active Substance: LEVOTHYROXINE
  2. PROZAC [Concomitant]
     Active Substance: FLUOXETINE HYDROCHLORIDE
  3. RANITIDINE [Concomitant]
     Active Substance: RANITIDINE\RANITIDINE HYDROCHLORIDE
  4. AUGMENTIN [Concomitant]
     Active Substance: AMOXICILLIN\CLAVULANATE POTASSIUM
  5. IRON [Concomitant]
     Active Substance: IRON
  6. SPIRONOLACT [Concomitant]
  7. AMPHETAMINE [Concomitant]
     Active Substance: AMPHETAMINE
  8. SUTENT [Concomitant]
     Active Substance: SUNITINIB MALATE
  9. ZOFRAN [Concomitant]
     Active Substance: ONDANSETRON HYDROCHLORIDE
  10. MILK OF MAGN [Concomitant]
  11. FONDAPARINUX [Concomitant]
     Active Substance: FONDAPARINUX
  12. LORAZEPAM. [Concomitant]
     Active Substance: LORAZEPAM
  13. COUMADIN [Concomitant]
     Active Substance: WARFARIN SODIUM
  14. MULTI VITAMIN [Concomitant]
     Active Substance: VITAMINS
  15. PROCHLORPER [Concomitant]
  16. INLYTA [Suspect]
     Active Substance: AXITINIB
     Indication: HEPATIC CANCER
     Route: 048
     Dates: start: 20150812

REACTIONS (3)
  - Fatigue [None]
  - Confusional state [None]
  - Tremor [None]

NARRATIVE: CASE EVENT DATE: 20150812
